FAERS Safety Report 7555922-X (Version None)
Quarter: 2011Q2

REPORT INFORMATION
  Report Type: 
  Country: None (occurrence: None)
  Receive Date: 20110618
  Receipt Date: 20110606
  Transmission Date: 20111010
  Serious: Yes (Hospitalization, Other)
  Sender: FDA-Public Use
  Company Number: US-ELI_LILLY_AND_COMPANY-US201104003797

PATIENT
  Sex: Female
  Weight: 58.503 kg

DRUGS (8)
  1. FORTEO [Suspect]
     Indication: OSTEOPOROSIS
     Dosage: 20 UG, QD
     Route: 058
     Dates: start: 20101023
  2. SIMVASTATIN [Concomitant]
  3. FORTEO [Suspect]
     Dosage: 20 UG, QD
     Route: 058
  4. VITAMIN D [Concomitant]
  5. MULTI-VITAMIN [Concomitant]
  6. CALCIUM CARBONATE [Concomitant]
  7. LIPITOR [Concomitant]
     Dosage: 10 MG, UNK
  8. FISH OIL [Concomitant]

REACTIONS (2)
  - BREAST CALCIFICATIONS [None]
  - BREAST CANCER IN SITU [None]
